FAERS Safety Report 11409928 (Version 6)
Quarter: 2016Q1

REPORT INFORMATION
  Report Type: Report from Study
  Country: US (occurrence: US)
  Receive Date: 20150824
  Receipt Date: 20160113
  Transmission Date: 20160525
  Serious: Yes (Hospitalization, Other)
  Sender: FDA-Public Use
  Company Number: US-ROCHE-ITM201506IM018022

PATIENT
  Sex: Female
  Weight: 72.19 kg

DRUGS (2)
  1. ESBRIET [Suspect]
     Active Substance: PIRFENIDONE
     Indication: IDIOPATHIC PULMONARY FIBROSIS
     Route: 048
     Dates: start: 20150508
  2. ESBRIET [Suspect]
     Active Substance: PIRFENIDONE
     Dosage: 2403MG DAILY, 2-3 CAPSULES TID PO
     Route: 048
     Dates: start: 20150611

REACTIONS (14)
  - Vomiting [Unknown]
  - Decreased appetite [Unknown]
  - Syncope [Unknown]
  - Asthenia [Unknown]
  - Hypotension [Unknown]
  - Gastroenteritis [Unknown]
  - Diarrhoea [Unknown]
  - Abdominal discomfort [Unknown]
  - Abdominal pain upper [Unknown]
  - Fatigue [Unknown]
  - Hypophagia [Unknown]
  - Lethargy [Unknown]
  - Weight increased [Unknown]
  - Nausea [Unknown]
